FAERS Safety Report 9004559 (Version 2)
Quarter: 2013Q1

REPORT INFORMATION
  Report Type: Report from Study
  Country: US (occurrence: US)
  Receive Date: 20130108
  Receipt Date: 20130322
  Transmission Date: 20140127
  Serious: Yes (Other)
  Sender: FDA-Public Use
  Company Number: US-ROCHE-1164377

PATIENT
  Age: 65 Year
  Sex: Female
  Weight: 60 kg

DRUGS (2)
  1. XELODA [Suspect]
     Indication: COLORECTAL CANCER METASTATIC
     Route: 048
     Dates: start: 201005
  2. XELODA [Suspect]
     Dosage: 1500 MG IN MORNING AND 1000 MG AT NIGHT
     Route: 048
     Dates: start: 20110224

REACTIONS (3)
  - Ileostomy [Unknown]
  - Peripheral coldness [Unknown]
  - Neuropathy peripheral [Unknown]
